FAERS Safety Report 7740605-3 (Version None)
Quarter: 2011Q3

REPORT INFORMATION
  Report Type: 
  Country: None (occurrence: None)
  Receive Date: 20110909
  Receipt Date: 20110831
  Transmission Date: 20111222
  Serious: Yes (Other)
  Sender: FDA-Public Use
  Company Number: GB-SANOFI-AVENTIS-2011SA056462

PATIENT
  Age: 50 Year

DRUGS (3)
  1. OXALIPLATIN [Suspect]
     Route: 065
     Dates: start: 20110321
  2. FLUOROURACIL [Suspect]
     Route: 065
     Dates: start: 20110321
  3. BEVACIZUMAB [Suspect]
     Route: 065
     Dates: start: 20110321

REACTIONS (1)
  - INTESTINAL PERFORATION [None]
